FAERS Safety Report 8371364-1 (Version None)
Quarter: 2012Q2

REPORT INFORMATION
  Report Type: 
  Country: None (occurrence: None)
  Receive Date: 20120518
  Receipt Date: 20120517
  Transmission Date: 20120825
  Serious: Yes (Death)
  Sender: FDA-Public Use
  Company Number: PHHY2012JP036612

PATIENT
  Sex: Male

DRUGS (2)
  1. SANDIMMUNE [Concomitant]
     Indication: BEHCET'S SYNDROME
     Route: 041
  2. NEORAL [Suspect]
     Indication: BEHCET'S SYNDROME
     Route: 048

REACTIONS (2)
  - DYSPHAGIA [None]
  - DEATH [None]
